FAERS Safety Report 8131004-3 (Version None)
Quarter: 2012Q1

REPORT INFORMATION
  Report Type: 
  Country: None (occurrence: None)
  Receive Date: 20120208
  Receipt Date: 20120208
  Transmission Date: 20120608
  Serious: No
  Sender: FDA-Public Use
  Company Number: None

PATIENT
  Age: 84 Year
  Sex: Male
  Weight: 77.7 kg

DRUGS (2)
  1. SULFAMETHOXAZOLE AND TRIMETHOPRIM [Suspect]
     Indication: CELLULITIS
     Dosage: 1 TAB BID PO
     Route: 048
     Dates: start: 20111012, end: 20111018
  2. RIFAMPIN [Suspect]
     Indication: CELLULITIS
     Dosage: 300 MG BID PO
     Route: 048
     Dates: start: 20111012, end: 20111019

REACTIONS (1)
  - THROMBOCYTOPENIA [None]
